FAERS Safety Report 7086194-0 (Version None)
Quarter: 2010Q4

REPORT INFORMATION
  Report Type: 
  Country: None (occurrence: None)
  Receive Date: 20101105
  Receipt Date: 20101026
  Transmission Date: 20110411
  Serious: Yes (Other)
  Sender: FDA-Public Use
  Company Number: US-JNJFOC-20101007620

PATIENT
  Age: 22 Year
  Sex: Male

DRUGS (6)
  1. INFLIXIMAB, RECOMBINANT [Suspect]
     Indication: ACUTE GRAFT VERSUS HOST DISEASE IN INTESTINE
     Route: 042
  2. INFLIXIMAB, RECOMBINANT [Suspect]
     Dosage: TIMES 4 DOSES
     Route: 042
  3. MYCOPHENOLATE MOFETIL [Concomitant]
     Indication: GRAFT VERSUS HOST DISEASE
  4. SIROLIMUS [Concomitant]
     Indication: GRAFT VERSUS HOST DISEASE
  5. BUDESONIDE [Concomitant]
  6. METHYLPREDNISOLONE [Concomitant]

REACTIONS (5)
  - BRONCHOPULMONARY ASPERGILLOSIS [None]
  - CYTOMEGALOVIRUS INFECTION [None]
  - DRUG DEPENDENCE [None]
  - EPSTEIN-BARR VIRUS INFECTION [None]
  - ILEUS PARALYTIC [None]
